FAERS Safety Report 12157704 (Version 1)
Quarter: 2016Q1

REPORT INFORMATION
  Report Type: Spontaneous
  Country: US (occurrence: US)
  Receive Date: 20160308
  Receipt Date: 20160308
  Transmission Date: 20160526
  Serious: No
  Sender: FDA-Public Use
  Company Number: US-JNJFOC-20141209240

PATIENT
  Age: 61 Year
  Sex: Male

DRUGS (17)
  1. EFFIENT [Concomitant]
     Active Substance: PRASUGREL HYDROCHLORIDE
  2. NORVASC [Concomitant]
     Active Substance: AMLODIPINE BESYLATE
  3. JALYN [Concomitant]
     Active Substance: DUTASTERIDE\TAMSULOSIN HYDROCHLORIDE
  4. POTASSIUM [Concomitant]
     Active Substance: POTASSIUM
  5. TUMS [Concomitant]
     Active Substance: CALCIUM CARBONATE
  6. COENZYME Q10 [Concomitant]
     Active Substance: UBIDECARENONE
  7. XANAX [Concomitant]
     Active Substance: ALPRAZOLAM
  8. ATENOLOL. [Concomitant]
     Active Substance: ATENOLOL
  9. IMBRUVICA [Suspect]
     Active Substance: IBRUTINIB
     Indication: CHRONIC LYMPHOCYTIC LEUKAEMIA
     Dosage: 420MG, EVERYDAY
     Route: 048
     Dates: start: 20141118
  10. ASPIRIN. [Concomitant]
     Active Substance: ASPIRIN
  11. LIPITOR [Concomitant]
     Active Substance: ATORVASTATIN CALCIUM
  12. SAW PALMETTO [Concomitant]
     Active Substance: SAW PALMETTO
  13. ZETIA [Concomitant]
     Active Substance: EZETIMIBE
  14. SERTRALINE [Concomitant]
     Active Substance: SERTRALINE HYDROCHLORIDE
  15. AZELASTINE HCL [Concomitant]
     Active Substance: AZELASTINE HYDROCHLORIDE
     Route: 045
  16. FLONASE [Concomitant]
     Active Substance: FLUTICASONE PROPIONATE
  17. GAVISCON FOAMTAB [Concomitant]

REACTIONS (2)
  - Urine odour abnormal [Not Recovered/Not Resolved]
  - Rash [Not Recovered/Not Resolved]

NARRATIVE: CASE EVENT DATE: 2014
